FAERS Safety Report 12764235 (Version 7)
Quarter: 2019Q4

REPORT INFORMATION
  Report Type: Spontaneous
  Country: US (occurrence: US)
  Receive Date: 20160920
  Receipt Date: 20191226
  Transmission Date: 20200122
  Serious: Yes (Hospitalization, Other)
  Sender: FDA-Public Use
  Company Number: US-PFIZER INC-2016437893

PATIENT
  Age: 47 Year
  Sex: Male

DRUGS (3)
  1. DILANTIN [Suspect]
     Active Substance: PHENYTOIN
     Dosage: 3 CAPS BID - M-TU-TH-FRI-SAT AND 3 CAPS AM + 4 CAPS PM - QW + SUN
  2. DILANTIN [Suspect]
     Active Substance: PHENYTOIN
     Indication: SEIZURE
     Dosage: 600 MG, 2X/DAY (300 MG MORNING, 300 MG NIGHT)[3 TABLETS TWICE A DAY]
  3. DILANTIN [Suspect]
     Active Substance: PHENYTOIN
     Dosage: ALTERNATE DAY TAKES 3 CAPSULES TWICE A DAY EXCEPT WED AND SUN (WHICH HE TAKES 3 CAPSULES IN THE MORN

REACTIONS (2)
  - Drug ineffective [Not Recovered/Not Resolved]
  - Prescribed overdose [Unknown]

NARRATIVE: CASE EVENT DATE: 2016
